FAERS Safety Report 20472893 (Version 1)
Quarter: 2022Q1

REPORT INFORMATION
  Report Type: Spontaneous
  Country: US (occurrence: US)
  Receive Date: 20220215
  Receipt Date: 20220215
  Transmission Date: 20220423
  Serious: No
  Sender: FDA-Public Use
  Company Number: US-NOVARTISTESTPH-NVSC2022US033449

PATIENT
  Sex: Female

DRUGS (2)
  1. ZOFRAN [Suspect]
     Active Substance: ONDANSETRON HYDROCHLORIDE
     Indication: Product used for unknown indication
     Dosage: UNK
     Route: 065
  2. DROPERIDOL [Suspect]
     Active Substance: DROPERIDOL
     Indication: Migraine
     Dosage: UNK (WANT TO SAY 5MG)
     Route: 065
     Dates: start: 20220207

REACTIONS (1)
  - Hypersensitivity [Unknown]
